FAERS Safety Report 16034007 (Version 1)
Quarter: 2019Q1

REPORT INFORMATION
  Report Type: Spontaneous
  Country: US (occurrence: US)
  Receive Date: 20190305
  Receipt Date: 20190305
  Transmission Date: 20190418
  Serious: No
  Sender: FDA-Public Use
  Company Number: US-IMPAX LABORATORIES, LLC-2018-IPXL-02553

PATIENT
  Sex: Female
  Weight: 76 kg

DRUGS (1)
  1. RYTARY [Suspect]
     Active Substance: CARBIDOPA\LEVODOPA
     Indication: PRODUCT USED FOR UNKNOWN INDICATION
     Dosage: 23.75/95 MG, THREE CAPSULES, THREE TIMES A DAY AT 8 AM, 12 PM AND 5 PM
     Route: 065
     Dates: start: 20180629, end: 20180716

REACTIONS (6)
  - Drug effect incomplete [Unknown]
  - Chest pain [Unknown]
  - Tremor [Unknown]
  - Asthenia [Unknown]
  - Dyspnoea [Unknown]
  - Chest discomfort [Unknown]

NARRATIVE: CASE EVENT DATE: 2018
